FAERS Safety Report 16870741 (Version 1)
Quarter: 2019Q3

REPORT INFORMATION
  Report Type: Spontaneous
  Country: US (occurrence: US)
  Receive Date: 20190930
  Receipt Date: 20190930
  Transmission Date: 20191005
  Serious: No
  Sender: FDA-Public Use
  Company Number: US-CLOVIS ONCOLOGY-CLO-2019-001439

PATIENT
  Age: 74 Year
  Sex: Female

DRUGS (5)
  1. LISINOPRIL. [Concomitant]
     Active Substance: LISINOPRIL
     Indication: PRODUCT USED FOR UNKNOWN INDICATION
  2. POTASSIUM [Concomitant]
     Active Substance: POTASSIUM
     Indication: PRODUCT USED FOR UNKNOWN INDICATION
  3. RUBRACA [Suspect]
     Active Substance: RUCAPARIB CAMSYLATE
     Indication: OVARIAN CANCER
     Dosage: 500 MG, BID
     Dates: start: 201906
  4. ATORVASTATIN [Concomitant]
     Active Substance: ATORVASTATIN
     Indication: PRODUCT USED FOR UNKNOWN INDICATION
  5. ASPIRIN                            /00002701/ [Concomitant]
     Active Substance: ASPIRIN
     Indication: PRODUCT USED FOR UNKNOWN INDICATION
     Dosage: UNK, QD

REACTIONS (8)
  - Hypersensitivity [Recovered/Resolved]
  - Dizziness [Unknown]
  - Fatigue [Unknown]
  - Vertigo [Recovered/Resolved]
  - Nausea [Unknown]
  - Constipation [Recovered/Resolved]
  - Decreased appetite [Unknown]
  - Taste disorder [Unknown]

NARRATIVE: CASE EVENT DATE: 2019
